FAERS Safety Report 4844975-5 (Version None)
Quarter: 2005Q4

REPORT INFORMATION
  Report Type: 
  Country: None (occurrence: None)
  Receive Date: 20051202
  Receipt Date: 20051202
  Transmission Date: 20060501
  Serious: Yes (Disabling)
  Sender: FDA-Public Use
  Company Number: None

PATIENT
  Age: 38 Year
  Sex: Female
  Weight: 68.0396 kg

DRUGS (1)
  1. OXYCONTIN [Suspect]
     Indication: SPINAL DISORDER
     Dosage: 80 MG 8 TABS PO Q 8
     Route: 048
     Dates: start: 20030102, end: 20051128

REACTIONS (4)
  - DRUG EFFECT DECREASED [None]
  - NAUSEA [None]
  - SOMNOLENCE [None]
  - VOMITING [None]
